FAERS Safety Report 11830284 (Version 3)
Quarter: 2015Q4

REPORT INFORMATION
  Report Type: Spontaneous
  Country: US (occurrence: US)
  Receive Date: 20151214
  Receipt Date: 20151214
  Transmission Date: 20160305
  Serious: No
  Sender: FDA-Public Use
  Company Number: US-JNJFOC-20151119730

PATIENT
  Age: 85 Year
  Sex: Female
  Weight: 58.06 kg

DRUGS (2)
  1. IMODIUM MULTI-SYMPTOM RELIEF [Suspect]
     Active Substance: DIMETHICONE\LOPERAMIDE HYDROCHLORIDE
     Indication: DIARRHOEA
     Route: 048
  2. IMODIUM MULTI-SYMPTOM RELIEF [Suspect]
     Active Substance: DIMETHICONE\LOPERAMIDE HYDROCHLORIDE
     Route: 048

REACTIONS (7)
  - Foreign body [Recovered/Resolved]
  - Product coating issue [Unknown]
  - Product size issue [Unknown]
  - Drug effect decreased [Unknown]
  - Dry mouth [Recovered/Resolved]
  - Product taste abnormal [Unknown]
  - Dysphagia [Recovered/Resolved]
